FAERS Safety Report 8023720-9 (Version None)
Quarter: 2012Q1

REPORT INFORMATION
  Report Type: 
  Country: None (occurrence: None)
  Receive Date: 20120105
  Receipt Date: 20111227
  Transmission Date: 20120608
  Serious: Yes (Hospitalization, Other)
  Sender: FDA-Public Use
  Company Number: US-BAYER-2011-076518

PATIENT
  Age: 26 Year
  Sex: Female
  Weight: 136 kg

DRUGS (5)
  1. METFORMIN HCL [Concomitant]
     Dosage: 1000 MG, UNK
     Route: 048
     Dates: start: 20071201, end: 20080527
  2. FLUOXETINE HCL [Concomitant]
     Dosage: 10 MG, UNK
     Route: 048
     Dates: start: 20071227, end: 20080423
  3. TOPAMAX [Concomitant]
     Dosage: 25 MG, UNK
     Route: 048
     Dates: start: 20071227, end: 20080527
  4. YASMIN [Suspect]
     Indication: CONTRACEPTION
     Dosage: UNK
     Route: 048
     Dates: start: 20080301, end: 20080701
  5. SYNTHROID [Concomitant]
     Dosage: 25 MG, UNK
     Route: 048
     Dates: start: 20070101, end: 20090101

REACTIONS (9)
  - CHOLECYSTITIS CHRONIC [None]
  - INJURY [None]
  - ANXIETY [None]
  - CHOLECYSTITIS INFECTIVE [None]
  - PSYCHOLOGICAL TRAUMA [None]
  - ABDOMINAL PAIN UPPER [None]
  - BACK PAIN [None]
  - FEAR [None]
  - EMOTIONAL DISTRESS [None]
